FAERS Safety Report 18377008 (Version 3)
Quarter: 2020Q4

REPORT INFORMATION
  Report Type: Spontaneous
  Country: US (occurrence: US)
  Receive Date: 20201013
  Receipt Date: 20201230
  Transmission Date: 20210114
  Serious: No
  Sender: FDA-Public Use
  Company Number: US-PFIZER INC-2019183397

PATIENT
  Age: 73 Year
  Sex: Female
  Weight: 104.3 kg

DRUGS (1)
  1. LYRICA [Suspect]
     Active Substance: PREGABALIN
     Indication: FIBROMYALGIA
     Dosage: 1 DF, DAILY

REACTIONS (4)
  - Intentional product misuse [Unknown]
  - Product label confusion [Unknown]
  - Strabismus [Unknown]
  - Sneezing [Unknown]
